FAERS Safety Report 15468668 (Version 1)
Quarter: 2018Q4

REPORT INFORMATION
  Report Type: Report from Study
  Country: KR (occurrence: KR)
  Receive Date: 20181005
  Receipt Date: 20181005
  Transmission Date: 20190204
  Serious: Yes (Hospitalization, Other)
  Sender: FDA-Public Use
  Company Number: KR-BAYER-2018-185462

PATIENT
  Age: 35 Year
  Sex: Male

DRUGS (3)
  1. ASPIRIN. [Suspect]
     Active Substance: ASPIRIN
     Dosage: 100 MG, QD
     Route: 048
  2. HEPARIN [Interacting]
     Active Substance: HEPARIN SODIUM
     Dosage: 4000 IU, UNK
     Route: 042
  3. FRAXIPARINE [Interacting]
     Active Substance: NADROPARIN CALCIUM
     Dosage: 2850 IU, BID
     Route: 058

REACTIONS (4)
  - Aneurysm ruptured [None]
  - Product administration error [None]
  - Haemorrhage [None]
  - Labelled drug-drug interaction medication error [None]
